FAERS Safety Report 23258466 (Version 1)
Quarter: 2023Q4

REPORT INFORMATION
  Report Type: Spontaneous
  Country: US (occurrence: None)
  Receive Date: 20231201
  Receipt Date: 20231201
  Transmission Date: 20240110
  Serious: No
  Sender: FDA-Public Use
  Company Number: None

PATIENT
  Age: 79 Year
  Sex: Female
  Weight: 72 kg

DRUGS (8)
  1. ZOLEDRONIC ACID [Suspect]
     Active Substance: ZOLEDRONIC ACID
     Indication: Osteoporosis
     Route: 042
  2. HYDROCHLOROTHIAZIDE\VALSARTAN [Concomitant]
     Active Substance: HYDROCHLOROTHIAZIDE\VALSARTAN
  3. ATORVASTATIN [Concomitant]
     Active Substance: ATORVASTATIN
  4. ASPIRIN [Concomitant]
     Active Substance: ASPIRIN
  5. VITAMINS [Concomitant]
     Active Substance: VITAMINS
  6. CALCIUM [Concomitant]
     Active Substance: CALCIUM
  7. MAGNESIUM [Concomitant]
     Active Substance: MAGNESIUM
  8. VITAMIN D [Concomitant]
     Active Substance: VITAMIN D NOS

REACTIONS (8)
  - Pain [None]
  - Headache [None]
  - Abdominal pain upper [None]
  - Nausea [None]
  - Heart rate increased [None]
  - Hypotension [None]
  - Asthenia [None]
  - Dizziness [None]

NARRATIVE: CASE EVENT DATE: 20231129
